FAERS Safety Report 5502641-7 (Version None)
Quarter: 2007Q4

REPORT INFORMATION
  Report Type: 
  Country: None (occurrence: None)
  Receive Date: 20071029
  Receipt Date: 20071015
  Transmission Date: 20080405
  Serious: Yes (Other)
  Sender: FDA-Public Use
  Company Number: 07102289

PATIENT
  Sex: Female

DRUGS (1)
  1. OVIDE [Suspect]
     Indication: LICE INFESTATION
     Dosage: 1APP, ONCE, TOPICAL
     Route: 061

REACTIONS (4)
  - HYPERAESTHESIA [None]
  - SKIN BURNING SENSATION [None]
  - STAPHYLOCOCCAL INFECTION [None]
  - SWELLING [None]
